FAERS Safety Report 14266696 (Version 1)
Quarter: 2017Q4

REPORT INFORMATION
  Report Type: Spontaneous
  Country: US (occurrence: US)
  Receive Date: 20171211
  Receipt Date: 20171211
  Transmission Date: 20180321
  Serious: No
  Sender: FDA-Public Use
  Company Number: US-SHIRE-US201726336

PATIENT
  Age: 4 Year

DRUGS (1)
  1. ONCASPAR [Suspect]
     Active Substance: PEGASPARGASE
     Indication: ACUTE LYMPHOCYTIC LEUKAEMIA
     Route: 042

REACTIONS (3)
  - Cough [Unknown]
  - Lip swelling [Unknown]
  - Urticaria [Unknown]

NARRATIVE: CASE EVENT DATE: 20171011
